FAERS Safety Report 6993624-9 (Version None)
Quarter: 2010Q3

REPORT INFORMATION
  Report Type: 
  Country: None (occurrence: None)
  Receive Date: 20100917
  Receipt Date: 20070522
  Transmission Date: 20110219
  Serious: Yes (Other)
  Sender: FDA-Public Use
  Company Number: US-ASTRAZENECA-2006UW24594

PATIENT
  Sex: Male
  Weight: 74.8 kg

DRUGS (10)
  1. SEROQUEL [Suspect]
     Indication: DEPRESSION
     Dosage: 25 MG - 250 MG
     Route: 048
     Dates: start: 20050622
  2. ABILIFY [Concomitant]
  3. THORAZINE [Concomitant]
  4. ZYPREXA [Concomitant]
  5. LEXAPRO [Concomitant]
     Dosage: STRENGTH - 10 MG, 20 MG
     Dates: start: 20050622
  6. ZOCOR [Concomitant]
     Dates: start: 20050607
  7. CARISOPRODOL [Concomitant]
     Dates: start: 20050607
  8. CLONAZEPAM [Concomitant]
     Dosage: STRENGTH - 0.5 MG, 1 MG
     Dates: start: 20050622
  9. AVAPRO [Concomitant]
     Dates: start: 20060914
  10. LORTAB [Concomitant]
     Indication: PAIN
     Dates: start: 20060116

REACTIONS (1)
  - PANCREATITIS [None]
